FAERS Safety Report 8996902 (Version 2)
Quarter: 2013Q1

REPORT INFORMATION
  Report Type: Spontaneous
  Country: US (occurrence: US)
  Receive Date: 20130104
  Receipt Date: 20130201
  Transmission Date: 20140127
  Serious: Yes (Other)
  Sender: FDA-Public Use
  Company Number: US-ASTRAZENECA-2012SE95154

PATIENT
  Sex: Male

DRUGS (1)
  1. TENORMIN [Suspect]
     Indication: TACHYCARDIA
     Route: 048

REACTIONS (2)
  - Transient ischaemic attack [Unknown]
  - Drug dose omission [Unknown]
